FAERS Safety Report 8404620-9 (Version None)
Quarter: 2012Q2

REPORT INFORMATION
  Report Type: 
  Country: None (occurrence: None)
  Receive Date: 20120601
  Receipt Date: 20111214
  Transmission Date: 20120825
  Serious: No
  Sender: FDA-Public Use
  Company Number: US-NOVEN-11US003795

PATIENT

DRUGS (2)
  1. DAYTRANA [Suspect]
     Indication: ATTENTION DEFICIT/HYPERACTIVITY DISORDER
     Dosage: 15 MG, QD
     Route: 062
     Dates: start: 20070101
  2. SINGULAIR [Concomitant]
     Indication: ASTHMA
     Dosage: 18 UG, UNK
     Route: 045

REACTIONS (2)
  - PRODUCT QUALITY ISSUE [None]
  - NO ADVERSE EVENT [None]
